FAERS Safety Report 9324736 (Version 1)
Quarter: 2013Q2

REPORT INFORMATION
  Report Type: Spontaneous
  Country: US (occurrence: None)
  Receive Date: 20130529
  Receipt Date: 20130529
  Transmission Date: 20140414
  Serious: Yes (Hospitalization, Other)
  Sender: FDA-Public Use
  Company Number: JPI-P-032049

PATIENT
  Age: 41 Year
  Sex: Female

DRUGS (3)
  1. XYREM [Suspect]
     Indication: HYPERSOMNIA
     Route: 048
     Dates: start: 20130502, end: 20130503
  2. DONEPEZIL HYDROCHLORIDE [Concomitant]
  3. ARMODAFINIL [Concomitant]

REACTIONS (5)
  - Feeling abnormal [None]
  - Drug administration error [None]
  - Road traffic accident [None]
  - Nightmare [None]
  - Abnormal behaviour [None]
